FAERS Safety Report 8530728-3 (Version None)
Quarter: 2012Q3

REPORT INFORMATION
  Report Type: 
  Country: None (occurrence: None)
  Receive Date: 20120723
  Receipt Date: 20120716
  Transmission Date: 20120928
  Serious: Yes (Other)
  Sender: FDA-Public Use
  Company Number: PHHY2012CA057175

PATIENT
  Sex: Female

DRUGS (2)
  1. ZOLEDRONOC ACID [Suspect]
     Indication: OSTEOPOROSIS
     Route: 042
     Dates: start: 20120627
  2. NEXIUM [Concomitant]
     Dosage: 40 MG, QD

REACTIONS (4)
  - OEDEMA PERIPHERAL [None]
  - MUSCLE SPASMS [None]
  - PAIN IN EXTREMITY [None]
  - CHEST DISCOMFORT [None]
